FAERS Safety Report 19709673 (Version 2)
Quarter: 2021Q3

REPORT INFORMATION
  Report Type: Report from Study
  Country: KR (occurrence: KR)
  Receive Date: 20210816
  Receipt Date: 20210922
  Transmission Date: 20211014
  Serious: Yes (Death, Other)
  Sender: FDA-Public Use
  Company Number: KR-PFIZER INC-2015034892

PATIENT
  Age: 79 Year

DRUGS (1)
  1. LEVOFLOXACIN. [Suspect]
     Active Substance: LEVOFLOXACIN
     Indication: PROPHYLAXIS
     Dosage: 500 MG, CYCLIC
     Route: 048

REACTIONS (3)
  - Septic shock [Fatal]
  - Clostridium difficile colitis [Unknown]
  - Colitis [Unknown]
